FAERS Safety Report 20135679 (Version 1)
Quarter: 2021Q4

REPORT INFORMATION
  Report Type: Spontaneous
  Country: US (occurrence: US)
  Receive Date: 20211201
  Receipt Date: 20211201
  Transmission Date: 20220303
  Serious: No
  Sender: FDA-Public Use
  Company Number: US-PFIZER INC-2021479278

PATIENT
  Age: 61 Year
  Sex: Female
  Weight: 94.35 kg

DRUGS (1)
  1. MANNITOL [Suspect]
     Active Substance: MANNITOL
     Dosage: UNK

REACTIONS (1)
  - Drug hypersensitivity [Unknown]
